FAERS Safety Report 13299230 (Version 1)
Quarter: 2017Q1

REPORT INFORMATION
  Report Type: Report from Study
  Country: CA (occurrence: CA)
  Receive Date: 20170306
  Receipt Date: 20170306
  Transmission Date: 20170428
  Serious: Yes (Other)
  Sender: FDA-Public Use
  Company Number: CA-JNJFOC-20160227648

PATIENT
  Age: 79 Year
  Sex: Male

DRUGS (4)
  1. IMBRUVICA [Suspect]
     Active Substance: IBRUTINIB
     Indication: CHRONIC LYMPHOCYTIC LEUKAEMIA
     Route: 048
     Dates: start: 2017
  2. IMBRUVICA [Suspect]
     Active Substance: IBRUTINIB
     Indication: CHRONIC LYMPHOCYTIC LEUKAEMIA
     Route: 048
     Dates: start: 20160209, end: 20160301
  3. IMBRUVICA [Suspect]
     Active Substance: IBRUTINIB
     Indication: CHRONIC LYMPHOCYTIC LEUKAEMIA
     Route: 048
     Dates: start: 20160322, end: 201606
  4. IMBRUVICA [Suspect]
     Active Substance: IBRUTINIB
     Indication: CHRONIC LYMPHOCYTIC LEUKAEMIA
     Route: 048
     Dates: start: 201609

REACTIONS (14)
  - Neutropenia [Unknown]
  - Dry mouth [Not Recovered/Not Resolved]
  - Endocarditis [Recovered/Resolved]
  - Fatigue [Not Recovered/Not Resolved]
  - Feeling cold [Recovering/Resolving]
  - Tremor [Unknown]
  - Skin ulcer [Unknown]
  - Herpes zoster [Recovering/Resolving]
  - Chills [Unknown]
  - Asthenia [Not Recovered/Not Resolved]
  - Bacteraemia [Recovered/Resolved]
  - Malaise [Unknown]
  - Sepsis [Recovered/Resolved]
  - Eating disorder [Recovering/Resolving]

NARRATIVE: CASE EVENT DATE: 2016
